FAERS Safety Report 4433987-1 (Version None)
Quarter: 2004Q3

REPORT INFORMATION
  Report Type: 
  Country: None (occurrence: None)
  Receive Date: 20040825
  Receipt Date: 20040810
  Transmission Date: 20050211
  Serious: Yes (Other)
  Sender: FDA-Public Use
  Company Number: USA040875091

PATIENT
  Age: 60 Year
  Sex: Male

DRUGS (8)
  1. CIALIS [Suspect]
     Dates: end: 20040701
  2. PREDNISONE [Concomitant]
  3. DARVOCET-N 100 [Concomitant]
  4. PROGRAF [Concomitant]
  5. DIOVAN /SCH/ (VALSARTAN) [Concomitant]
  6. TYLENOL /USA/ (PARACETAMOL) [Concomitant]
  7. DARVON [Concomitant]
  8. BEXTRA [Concomitant]

REACTIONS (2)
  - ALANINE AMINOTRANSFERASE INCREASED [None]
  - ASPARTATE AMINOTRANSFERASE INCREASED [None]
